FAERS Safety Report 11806154 (Version 1)
Quarter: 2015Q4

REPORT INFORMATION
  Report Type: Spontaneous
  Country: AT (occurrence: AT)
  Receive Date: 20151207
  Receipt Date: 20151207
  Transmission Date: 20160305
  Serious: Yes (Hospitalization)
  Sender: FDA-Public Use
  Company Number: AT-WATSON-2015-26309

PATIENT
  Age: 77 Year
  Weight: 85 kg

DRUGS (10)
  1. TELMISARTAN (UNKNOWN) [Suspect]
     Active Substance: TELMISARTAN
     Dosage: 40 MG, DAILY
     Route: 065
  2. SIMVASTATIN. [Concomitant]
     Active Substance: SIMVASTATIN
     Indication: BLOOD CHOLESTEROL INCREASED
     Dosage: 20 MG, DAILY
     Route: 065
  3. MICARDIS [Concomitant]
     Active Substance: TELMISARTAN
     Indication: HYPERTENSION
     Dosage: 1.5 DF, DAILY
     Route: 065
  4. SIRDALUD [Concomitant]
     Active Substance: TIZANIDINE
     Indication: HYPOTONIA
     Dosage: 2 MG, DAILY
     Route: 065
  5. TELMISARTAN (UNKNOWN) [Suspect]
     Active Substance: TELMISARTAN
     Indication: HYPERTENSION
     Dosage: 80 MG, DAILY
     Route: 065
  6. LASIX [Concomitant]
     Active Substance: FUROSEMIDE
     Indication: MICTURITION URGENCY
     Dosage: 40 DF, DAILY
     Route: 065
  7. THYREX [Concomitant]
     Active Substance: LEVOTHYROXINE SODIUM
     Indication: HYPOTHYROIDISM
     Dosage: 0.5 DF, DAILY
     Route: 065
  8. CYMBALTA [Concomitant]
     Active Substance: DULOXETINE HYDROCHLORIDE
     Indication: NERVOUS SYSTEM DISORDER
     Dosage: 30 MG, DAILY
     Route: 065
  9. TRITTICO [Concomitant]
     Active Substance: TRAZODONE HYDROCHLORIDE
     Indication: NERVOUS SYSTEM DISORDER
     Dosage: 0.3 DF, DAILY
     Route: 065
  10. PANTOLOC                           /01263204/ [Concomitant]
     Active Substance: PANTOPRAZOLE SODIUM
     Indication: PRODUCT USED FOR UNKNOWN INDICATION
     Dosage: 40 MG, DAILY
     Route: 065

REACTIONS (5)
  - Dyspnoea [Recovered/Resolved]
  - Chest pain [Recovered/Resolved]
  - Blood pressure increased [Recovered/Resolved]
  - Tracheal pain [Recovered/Resolved]
  - Drug ineffective [Recovered/Resolved]

NARRATIVE: CASE EVENT DATE: 20151006
